FAERS Safety Report 14107589 (Version 2)
Quarter: 2018Q1

REPORT INFORMATION
  Report Type: Not Available
  Country: US (occurrence: US)
  Receive Date: 20171019
  Receipt Date: 20180106
  Transmission Date: 20180508
  Serious: No
  Sender: FDA-Public Use
  Company Number: US-NEUROCRINE BIOSCIENCES INC.-2017NBI00815

PATIENT
  Age: 74 Year
  Sex: Female

DRUGS (2)
  1. INGREZZA [Suspect]
     Active Substance: VALBENAZINE
     Indication: PRODUCT USED FOR UNKNOWN INDICATION
     Route: 048
     Dates: start: 20170810, end: 20170817
  2. INGREZZA [Suspect]
     Active Substance: VALBENAZINE
     Route: 048
     Dates: start: 20170818

REACTIONS (9)
  - Alopecia [Unknown]
  - Tremor [Recovering/Resolving]
  - Somnolence [Recovering/Resolving]
  - Lacrimation increased [Recovering/Resolving]
  - Joint stiffness [Recovering/Resolving]
  - Vision blurred [Recovering/Resolving]
  - Abnormal dreams [Recovering/Resolving]
  - Wrong technique in product usage process [Not Recovered/Not Resolved]
  - Tooth infection [Unknown]

NARRATIVE: CASE EVENT DATE: 2017
